FAERS Safety Report 11936086 (Version 2)
Quarter: 2016Q3

REPORT INFORMATION
  Report Type: Report from Study
  Country: US (occurrence: US)
  Receive Date: 20160121
  Receipt Date: 20160726
  Transmission Date: 20161109
  Serious: Yes (Hospitalization)
  Sender: FDA-Public Use
  Company Number: US-AMGEN-USASL2015121552

PATIENT
  Age: 46 Year
  Sex: Female

DRUGS (1)
  1. KYPROLIS [Suspect]
     Active Substance: CARFILZOMIB
     Indication: PRODUCT USED FOR UNKNOWN INDICATION
     Dosage: 2 DAYS/WEEK EVERY OTHER WEEK
     Route: 065
     Dates: end: 201603

REACTIONS (4)
  - Influenza [Unknown]
  - Drug abuse [Unknown]
  - Off label use [Unknown]
  - Fatigue [Unknown]
